FAERS Safety Report 11767408 (Version 2)
Quarter: 2016Q3

REPORT INFORMATION
  Report Type: Spontaneous
  Country: BR (occurrence: BR)
  Receive Date: 20151123
  Receipt Date: 20160929
  Transmission Date: 20161109
  Serious: Yes (Hospitalization, Other)
  Sender: FDA-Public Use
  Company Number: BR-JNJFOC-20151120549

PATIENT
  Sex: Male

DRUGS (4)
  1. HALDOL [Suspect]
     Active Substance: HALOPERIDOL
     Indication: DEPRESSION
     Route: 065
     Dates: start: 1997, end: 1999
  2. LITHIUM CARBONATE. [Concomitant]
     Active Substance: LITHIUM CARBONATE
     Route: 065
  3. RISPERIDONE. [Concomitant]
     Active Substance: RISPERIDONE
     Route: 065
     Dates: start: 2001
  4. AKINETON [Concomitant]
     Active Substance: BIPERIDEN HYDROCHLORIDE
     Route: 065

REACTIONS (10)
  - Communication disorder [Recovered/Resolved]
  - Product use issue [Unknown]
  - Abnormal behaviour [Unknown]
  - Asthenia [Recovered/Resolved]
  - Blood pressure increased [Unknown]
  - Psychotic disorder [Unknown]
  - Sedation [Recovered/Resolved]
  - Depression [Unknown]
  - Off label use [Unknown]
  - Malaise [Recovered/Resolved]

NARRATIVE: CASE EVENT DATE: 1997
